FAERS Safety Report 18212567 (Version 1)
Quarter: 2020Q3

REPORT INFORMATION
  Report Type: Report from Study
  Country: IT (occurrence: IT)
  Receive Date: 20200831
  Receipt Date: 20200831
  Transmission Date: 20201103
  Serious: Yes (Other)
  Sender: FDA-Public Use
  Company Number: IT-TAKEDA-2020TUS036442

PATIENT

DRUGS (2)
  1. ESCITALOPRAM [Suspect]
     Active Substance: ESCITALOPRAM OXALATE
     Indication: BURNING MOUTH SYNDROME
     Dosage: 10 MILLIGRAM, QD
     Route: 065
  2. VORTIOXETINE. [Suspect]
     Active Substance: VORTIOXETINE
     Indication: BURNING MOUTH SYNDROME
     Dosage: 15 MILLIGRAM, QD
     Route: 065

REACTIONS (8)
  - Abdominal pain [Unknown]
  - Nausea [Unknown]
  - Product use in unapproved indication [Unknown]
  - Sexual dysfunction [Unknown]
  - Therapeutic response unexpected [Unknown]
  - Electrocardiogram QT prolonged [Unknown]
  - Therapy non-responder [Unknown]
  - Somnolence [Unknown]
